FAERS Safety Report 7592273-1 (Version None)
Quarter: 2011Q2

REPORT INFORMATION
  Report Type: 
  Country: None (occurrence: None)
  Receive Date: 20110628
  Receipt Date: 20110622
  Transmission Date: 20111010
  Serious: Yes (Hospitalization, Disabling, Other)
  Sender: FDA-Public Use
  Company Number: 2009SP035995

PATIENT
  Age: 20 Year
  Sex: Female
  Weight: 86.1834 kg

DRUGS (3)
  1. NUVARING [Suspect]
     Indication: CONTRACEPTION
     Dates: start: 20060801, end: 20070126
  2. EXCEDRIN (MIGRAINE) [Concomitant]
  3. TYLENOL RAPID RELEASE [Concomitant]

REACTIONS (38)
  - CEREBROVASCULAR ACCIDENT [None]
  - CHEST PAIN [None]
  - DYSPNOEA [None]
  - HYPOAESTHESIA [None]
  - CAESAREAN SECTION [None]
  - NAUSEA [None]
  - FLANK PAIN [None]
  - HYPERTENSION [None]
  - TRANSIENT ISCHAEMIC ATTACK [None]
  - MULTIPLE INJURIES [None]
  - ANXIETY [None]
  - PALPITATIONS [None]
  - SINUS TACHYCARDIA [None]
  - ATELECTASIS [None]
  - URINARY TRACT INFECTION [None]
  - HYPOAESTHESIA FACIAL [None]
  - DIZZINESS [None]
  - DEEP VEIN THROMBOSIS [None]
  - FATIGUE [None]
  - SUPRAVENTRICULAR TACHYCARDIA [None]
  - PNEUMOPERITONEUM [None]
  - PLEURAL EFFUSION [None]
  - GASTROOESOPHAGEAL REFLUX DISEASE [None]
  - HYPOTHYROIDISM [None]
  - DRUG EXPOSURE BEFORE PREGNANCY [None]
  - ABDOMINAL PAIN UPPER [None]
  - MIGRAINE [None]
  - PREGNANCY [None]
  - MUSCULOSKELETAL CHEST PAIN [None]
  - TACHYPNOEA [None]
  - PULMONARY EMBOLISM [None]
  - HEADACHE [None]
  - PYELONEPHRITIS [None]
  - HEPATIC STEATOSIS [None]
  - PERIPARTUM CARDIOMYOPATHY [None]
  - CHOLELITHIASIS [None]
  - LUNG DISORDER [None]
  - ERUCTATION [None]
